FAERS Safety Report 5269914-7 (Version None)
Quarter: 2007Q1

REPORT INFORMATION
  Report Type: 
  Country: None (occurrence: None)
  Receive Date: 20070314
  Receipt Date: 20070301
  Transmission Date: 20070707
  Serious: Yes (Life-Threatening)
  Sender: FDA-Public Use
  Company Number: GXKR2007US02210

PATIENT
  Age: 5 Year
  Sex: Female
  Weight: 16.8 kg

DRUGS (7)
  1. CLONIDINE [Suspect]
     Indication: RESTLESSNESS
     Dosage: 0.1 MG, PRN
  2. NITROUS OXIDE(NITROUS OXIDE) [Suspect]
     Indication: GENERAL ANAESTHESIA
  3. SEVOFLURANE [Suspect]
     Indication: GENERAL ANAESTHESIA
  4. OXYGEN (OXYGEN) [Concomitant]
  5. RANITIDINE [Concomitant]
  6. LACTULOSE [Concomitant]
  7. BACLOFEN [Concomitant]

REACTIONS (6)
  - BLOOD PRESSURE DECREASED [None]
  - CARDIAC ARREST [None]
  - CHEST X-RAY ABNORMAL [None]
  - INTENTIONAL DRUG MISUSE [None]
  - SINUS BRADYCARDIA [None]
  - VENTRICULAR DYSFUNCTION [None]
